FAERS Safety Report 12762536 (Version 1)
Quarter: 2016Q3

REPORT INFORMATION
  Report Type: Spontaneous
  Country: NL (occurrence: NL)
  Receive Date: 20160920
  Receipt Date: 20160920
  Transmission Date: 20161109
  Serious: Yes (Other)
  Sender: FDA-Public Use
  Company Number: NL-PFIZER INC-2016435040

PATIENT
  Sex: Male

DRUGS (2)
  1. LYRICA [Suspect]
     Active Substance: PREGABALIN
     Dosage: 1000 MG, UNK
  2. LYRICA [Suspect]
     Active Substance: PREGABALIN
     Indication: FACIAL PAIN
     Dosage: 600 MG, 1X/DAY

REACTIONS (5)
  - Drug ineffective [Unknown]
  - Diverticulitis [Unknown]
  - Product use issue [Unknown]
  - Intentional overdose [Unknown]
  - Gastric ulcer [Unknown]
